FAERS Safety Report 7918504-3 (Version None)
Quarter: 2011Q4

REPORT INFORMATION
  Report Type: 
  Country: None (occurrence: None)
  Receive Date: 20111116
  Receipt Date: 20111026
  Transmission Date: 20120403
  Serious: No
  Sender: FDA-Public Use
  Company Number: US-COVIDIEN/TYCO HEALTHCARE/MALLINCKRODT-T201102318

PATIENT
  Age: 37 Year
  Sex: Female
  Weight: 77.098 kg

DRUGS (10)
  1. KLONOPIN [Concomitant]
     Dosage: 1 MG, QID
     Route: 048
  2. SEASONALE [Suspect]
     Indication: DYSFUNCTIONAL UTERINE BLEEDING
  3. ZANAFLEX [Concomitant]
     Indication: MUSCLE CONTRACTIONS INVOLUNTARY
     Dosage: 4 MG, TID PRN
  4. FENTANYL-100 [Suspect]
     Indication: PAIN
     Dosage: 75 UG/HR, Q72 HRS
     Route: 062
     Dates: start: 20111024
  5. MS CONTIN [Concomitant]
     Dosage: 30 MG, TID
     Route: 048
     Dates: end: 20110210
  6. MS CONTIN [Concomitant]
     Dosage: 15 MG, TID
     Route: 048
     Dates: end: 20111023
  7. DEMEROL [Concomitant]
     Dosage: 100 MG, QID
     Route: 048
     Dates: end: 20111023
  8. PROMETHAZINE [Concomitant]
     Dosage: 50 MG, QID
     Route: 048
     Dates: end: 20111023
  9. SOLU-MEDROL [Concomitant]
     Dosage: UNK
     Route: 042
     Dates: start: 20101101
  10. SEASONALE [Suspect]
     Indication: CONTRACEPTION

REACTIONS (2)
  - DRUG EFFECT DECREASED [None]
  - PAIN [None]
